FAERS Safety Report 7021372-8 (Version None)
Quarter: 2010Q3

REPORT INFORMATION
  Report Type: 
  Country: None (occurrence: None)
  Receive Date: 20100929
  Receipt Date: 20100923
  Transmission Date: 20110219
  Serious: No
  Sender: FDA-Public Use
  Company Number: US-PFIZER INC-2010121918

PATIENT
  Sex: Female
  Weight: 104.31 kg

DRUGS (4)
  1. ZOLOFT [Suspect]
     Indication: ANXIETY
     Dosage: 50 MG, 1X/DAY
     Route: 048
     Dates: start: 20090901
  2. ALBUTEROL [Concomitant]
     Indication: DYSPNOEA
     Dosage: UNK
  3. IPRATROPIUM [Concomitant]
     Indication: DYSPNOEA
     Dosage: UNK
  4. PROTONIX [Concomitant]
     Indication: DYSPEPSIA
     Dosage: UNK

REACTIONS (1)
  - DRUG INEFFECTIVE [None]
